FAERS Safety Report 7263774-0 (Version None)
Quarter: 2011Q1

REPORT INFORMATION
  Report Type: 
  Country: None (occurrence: None)
  Receive Date: 20110130
  Receipt Date: 20101022
  Transmission Date: 20110831
  Serious: No
  Sender: FDA-Public Use
  Company Number: US-ABBOTT-10P-163-0680504-00

PATIENT
  Age: 27 Year
  Sex: Female

DRUGS (11)
  1. HUMIRA [Suspect]
     Indication: CROHN'S DISEASE
     Dates: start: 20070801
  2. XIAFIN [Concomitant]
     Indication: CROHN'S DISEASE
  3. CALCIUM [Concomitant]
     Indication: PRODUCT USED FOR UNKNOWN INDICATION
  4. LOBAXIN [Concomitant]
     Indication: MUSCLE SPASMS
  5. LEXAPRO [Concomitant]
     Indication: ANXIETY
  6. LEXAPRO [Concomitant]
     Indication: DEPRESSION
  7. SUDAFED 12 HOUR [Concomitant]
     Indication: SINUSITIS
  8. YASMIN [Concomitant]
     Indication: CONTRACEPTION
  9. ZYRTEC [Concomitant]
     Indication: HYPERSENSITIVITY
  10. MULTI-VITAMIN [Concomitant]
     Indication: PRODUCT USED FOR UNKNOWN INDICATION
  11. CANTASSA [Concomitant]
     Indication: CROHN'S DISEASE

REACTIONS (9)
  - ARTHRALGIA [None]
  - SWELLING [None]
  - ERYTHEMA [None]
  - OEDEMA PERIPHERAL [None]
  - PAIN IN EXTREMITY [None]
  - PRURITUS [None]
  - ABASIA [None]
  - JOINT RANGE OF MOTION DECREASED [None]
  - JOINT WARMTH [None]
